FAERS Safety Report 5835596-6 (Version None)
Quarter: 2008Q3

REPORT INFORMATION
  Report Type: 
  Country: None (occurrence: None)
  Receive Date: 20080806
  Receipt Date: 20080724
  Transmission Date: 20090109
  Serious: Yes (Other)
  Sender: FDA-Public Use
  Company Number: PHHY2008DE16160

PATIENT
  Age: 70 Year
  Sex: Male

DRUGS (1)
  1. GLEEVEC [Suspect]
     Indication: CHRONIC MYELOID LEUKAEMIA
     Dosage: 400 MG
     Route: 048
     Dates: start: 20040101

REACTIONS (5)
  - C-REACTIVE PROTEIN INCREASED [None]
  - DECREASED IMMUNE RESPONSIVENESS [None]
  - EMPYEMA [None]
  - RED BLOOD CELL SEDIMENTATION RATE INCREASED [None]
  - SURGERY [None]
